FAERS Safety Report 12633925 (Version 2)
Quarter: 2016Q3

REPORT INFORMATION
  Report Type: Report from Study
  Country: US (occurrence: US)
  Receive Date: 20160808
  Receipt Date: 20160822
  Transmission Date: 20161109
  Serious: Yes (Other)
  Sender: FDA-Public Use
  Company Number: US-BAYER-2016-137413

PATIENT
  Age: 58 Year
  Sex: Male

DRUGS (1)
  1. NEXAVAR [Suspect]
     Active Substance: SORAFENIB
     Indication: HEPATOCELLULAR CARCINOMA
     Dosage: 400 MG, BID
     Route: 048
     Dates: start: 20160708

REACTIONS (6)
  - Mass [None]
  - Syncope [None]
  - Fatigue [Not Recovered/Not Resolved]
  - Fall [None]
  - Head injury [None]
  - Blood pressure systolic increased [None]

NARRATIVE: CASE EVENT DATE: 201607
